FAERS Safety Report 12446247 (Version 1)
Quarter: 2016Q2

REPORT INFORMATION
  Report Type: Spontaneous
  Country: US (occurrence: None)
  Receive Date: 20160607
  Receipt Date: 20160607
  Transmission Date: 20160815
  Serious: Yes (Other)
  Sender: FDA-Public Use
  Company Number: None

PATIENT
  Age: 66 Year
  Sex: Female
  Weight: 70.31 kg

DRUGS (13)
  1. LISINOPRIL. [Concomitant]
     Active Substance: LISINOPRIL
  2. DEXILANT [Concomitant]
     Active Substance: DEXLANSOPRAZOLE
  3. A [Concomitant]
  4. LISINOPRIL 10MG, 10 MG ACCORD [Suspect]
     Active Substance: LISINOPRIL
     Indication: HYPERTENSION
     Dosage: 2 TABLET(S) TWICE A DAY TAKEN BY MOUTH
     Route: 048
     Dates: start: 20160519, end: 20160601
  5. DULEXITONE [Concomitant]
  6. VITAMIN D [Concomitant]
     Active Substance: CHOLECALCIFEROL
  7. PREDNISONE. [Concomitant]
     Active Substance: PREDNISONE
  8. BIOTIN [Concomitant]
     Active Substance: BIOTIN
  9. FOLIC ACID. [Concomitant]
     Active Substance: FOLIC ACID
  10. BIOTIN [Concomitant]
     Active Substance: BIOTIN
  11. IRON [Concomitant]
     Active Substance: IRON
  12. METHOTREXATE [Concomitant]
     Active Substance: METHOTREXATE
  13. PLAQUINIL [Concomitant]

REACTIONS (3)
  - Drug ineffective [None]
  - Product quality issue [None]
  - Blood pressure increased [None]

NARRATIVE: CASE EVENT DATE: 20160528
